FAERS Safety Report 26157614 (Version 1)
Quarter: 2025Q4

REPORT INFORMATION
  Report Type: Report from Study
  Country: US (occurrence: US)
  Receive Date: 20251215
  Receipt Date: 20251215
  Transmission Date: 20260118
  Serious: Yes (Other)
  Sender: ROCHE
  Company Number: US-ROCHE-10000457132

PATIENT

DRUGS (3)
  1. BEVACIZUMAB [Suspect]
     Active Substance: BEVACIZUMAB
     Indication: Glioma
  2. TEMOZOLOMIDE [Suspect]
     Active Substance: TEMOZOLOMIDE
     Indication: Glioma
  3. SELINEXOR [Suspect]
     Active Substance: SELINEXOR
     Indication: Glioma
     Dosage: MEDIAN STARTING DOSE WAS 50MG WEEKLY MEDIAN DOSE AT THE END OF TREATMENT WAS 70MG WEEKLY

REACTIONS (7)
  - Thrombocytopenia [Unknown]
  - Blood creatine phosphokinase increased [Unknown]
  - Nausea [Unknown]
  - Diarrhoea [Unknown]
  - Fatigue [Unknown]
  - Gastrointestinal toxicity [Unknown]
  - Nephropathy toxic [Unknown]
